FAERS Safety Report 7511709-5 (Version None)
Quarter: 2011Q2

REPORT INFORMATION
  Report Type: 
  Country: None (occurrence: None)
  Receive Date: 20110531
  Receipt Date: 20110517
  Transmission Date: 20111010
  Serious: Yes (Hospitalization)
  Sender: FDA-Public Use
  Company Number: CA-JNJFOC-20100901650

PATIENT
  Sex: Female
  Weight: 75.5 kg

DRUGS (8)
  1. DESMOPRESSIN ACETATE [Concomitant]
  2. METHADONE HCL [Concomitant]
  3. REMICADE [Suspect]
     Indication: CROHN'S DISEASE
     Route: 042
     Dates: start: 20091014
  4. FERROUS SULFATE TAB [Concomitant]
  5. CALCIUM CARBONATE [Concomitant]
  6. SEASONALE [Concomitant]
  7. M.V.I. [Concomitant]
  8. DESMOPRESSIN ACETATE [Concomitant]

REACTIONS (2)
  - ABDOMINAL PAIN [None]
  - VOMITING [None]
